FAERS Safety Report 13910508 (Version 1)
Quarter: 2017Q3

REPORT INFORMATION
  Report Type: Spontaneous
  Country: US (occurrence: US)
  Receive Date: 20170825
  Receipt Date: 20170825
  Transmission Date: 20171127
  Serious: Yes (Other)
  Sender: FDA-Public Use
  Company Number: None

PATIENT
  Age: 68 Year
  Sex: Male
  Weight: 78.75 kg

DRUGS (2)
  1. COLASAPM [Concomitant]
  2. LISINOPRIL. [Suspect]
     Active Substance: LISINOPRIL

REACTIONS (3)
  - Spontaneous penile erection [None]
  - Cough [None]
  - Erection increased [None]
